FAERS Safety Report 8208933-5 (Version None)
Quarter: 2012Q1

REPORT INFORMATION
  Report Type: 
  Country: None (occurrence: None)
  Receive Date: 20120314
  Receipt Date: 20120302
  Transmission Date: 20120608
  Serious: Yes (Other)
  Sender: FDA-Public Use
  Company Number: US-ROCHE-798664

PATIENT
  Sex: Male

DRUGS (5)
  1. TELAPREVIR [Suspect]
     Indication: HEPATITIS C
     Route: 065
  2. PEGASYS [Suspect]
     Indication: HEPATITIS C
     Route: 058
  3. RIBASPHERE [Suspect]
     Indication: HEPATITIS C
     Dosage: FREQUENCY:EACH DAY DIVIDED DOSES
     Route: 065
  4. RIBASPHERE [Suspect]
  5. PEGASYS [Suspect]

REACTIONS (9)
  - PROCEDURAL COMPLICATION [None]
  - FATIGUE [None]
  - EPISTAXIS [None]
  - ANAEMIA [None]
  - VISION BLURRED [None]
  - WHITE BLOOD CELL COUNT DECREASED [None]
  - NAUSEA [None]
  - INJECTION SITE REACTION [None]
  - UNEVALUABLE EVENT [None]
